FAERS Safety Report 19575086 (Version 1)
Quarter: 2021Q3

REPORT INFORMATION
  Report Type: Spontaneous
  Country: CA (occurrence: CA)
  Receive Date: 20210719
  Receipt Date: 20210719
  Transmission Date: 20211014
  Serious: Yes (Other)
  Sender: FDA-Public Use
  Company Number: CA-TEVA-2021-CA-1932518

PATIENT
  Age: 59 Year
  Sex: Female

DRUGS (9)
  1. METHOTREXATE SODIUM. [Concomitant]
     Active Substance: METHOTREXATE SODIUM
  2. CANNABIDIOL [Concomitant]
     Active Substance: CANNABIDIOL
  3. IBUPROFEN. [Concomitant]
     Active Substance: IBUPROFEN
     Indication: PAIN
     Dosage: 400 MILLIGRAM DAILY;
  4. METHOTREXATE. [Suspect]
     Active Substance: METHOTREXATE
     Indication: RHEUMATOID ARTHRITIS
     Route: 058
  5. CYMBALTA [Concomitant]
     Active Substance: DULOXETINE HYDROCHLORIDE
     Dosage: 90 MILLIGRAM DAILY;
  6. FOLIC ACID. [Concomitant]
     Active Substance: FOLIC ACID
     Route: 048
  7. RANITIDINE. [Concomitant]
     Active Substance: RANITIDINE
     Dosage: 300 MILLIGRAM DAILY;
  8. MACROGOL400/PROPYLENE GLYCOL [Concomitant]
  9. TEVETEN [EPROSARTAN] [Concomitant]
     Dosage: 800 MILLIGRAM DAILY;

REACTIONS (15)
  - Arthralgia [Unknown]
  - Chest pain [Unknown]
  - Hypersomnia [Unknown]
  - Peripheral swelling [Unknown]
  - Carpal tunnel syndrome [Unknown]
  - Depression [Unknown]
  - Pruritus [Unknown]
  - Rash pruritic [Unknown]
  - Anti-cyclic citrullinated peptide antibody positive [Unknown]
  - Blood creatinine increased [Unknown]
  - Product use issue [Unknown]
  - Arthritis [Unknown]
  - Fatigue [Unknown]
  - Drug ineffective [Unknown]
  - Off label use [Unknown]
